FAERS Safety Report 6070855-6 (Version None)
Quarter: 2009Q1

REPORT INFORMATION
  Report Type: 
  Country: None (occurrence: None)
  Receive Date: 20090209
  Receipt Date: 20081003
  Transmission Date: 20090719
  Serious: No
  Sender: FDA-Public Use
  Company Number: A0750458A

PATIENT
  Age: 44 Year
  Sex: Female

DRUGS (5)
  1. PAXIL [Suspect]
     Indication: DEPRESSION
     Dosage: 10MG PER DAY
     Route: 048
     Dates: start: 19960101
  2. LAMICTAL [Concomitant]
  3. SYNTHROID [Concomitant]
  4. PREVACID [Concomitant]
  5. KLONOPIN [Concomitant]

REACTIONS (5)
  - ANXIETY [None]
  - DRUG ADMINISTRATION ERROR [None]
  - MOOD SWINGS [None]
  - NAUSEA [None]
  - VERTIGO [None]
